FAERS Safety Report 5215400-X (Version None)
Quarter: 2007Q1

REPORT INFORMATION
  Report Type: 
  Country: None (occurrence: None)
  Receive Date: 20070116
  Receipt Date: 20070106
  Transmission Date: 20070707
  Serious: No
  Sender: FDA-Public Use
  Company Number: 151077ISR

PATIENT
  Age: 74 Year
  Sex: Female

DRUGS (14)
  1. AZILECT [Suspect]
     Indication: PARKINSON'S DISEASE
     Dosage: 1 MG (1 MG, 1 IN 1 D) ORAL
     Route: 048
     Dates: start: 20051219
  2. FORTISIP [Concomitant]
  3. ACETAZOLAMIDE [Concomitant]
  4. ACETYLSALICYLIC ACID [Concomitant]
  5. DOMPERIDONE [Concomitant]
  6. NORTRIPTYLINE HCL [Concomitant]
  7. DIPHENHYDRAMINE HCL [Concomitant]
  8. MADOPAR [Concomitant]
  9. RISPERIDONE [Concomitant]
  10. OMEPRAZOLE [Concomitant]
  11. PRAMIPEXOLE DIHYDROCHLORIDE [Concomitant]
  12. ROTIGOTINE [Concomitant]
  13. ESTRIOL [Concomitant]
  14. MOVELAT [Concomitant]

REACTIONS (1)
  - CHEYNE-STOKES RESPIRATION [None]
